FAERS Safety Report 7513039-4 (Version None)
Quarter: 2011Q2

REPORT INFORMATION
  Report Type: 
  Country: None (occurrence: None)
  Receive Date: 20110525
  Receipt Date: 20110525
  Transmission Date: 20111010
  Serious: No
  Sender: FDA-Public Use
  Company Number: None

PATIENT
  Age: 73 Year
  Sex: Female
  Weight: 56.6996 kg

DRUGS (1)
  1. MYAMBUTOL [Suspect]
     Indication: TUBERCULOSIS
     Dosage: 400MG 3/DAY PO
     Route: 048
     Dates: start: 20100401, end: 20110401

REACTIONS (1)
  - VISUAL IMPAIRMENT [None]
